FAERS Safety Report 23327666 (Version 1)
Quarter: 2023Q4

REPORT INFORMATION
  Report Type: Spontaneous
  Country: BA (occurrence: BA)
  Receive Date: 20231221
  Receipt Date: 20231221
  Transmission Date: 20240110
  Serious: Yes (Hospitalization)
  Sender: FDA-Public Use
  Company Number: BA-JNJFOC-20231240572

PATIENT
  Age: 43 Year

DRUGS (3)
  1. REMICADE [Suspect]
     Active Substance: INFLIXIMAB
     Indication: Colitis ulcerative
     Route: 041
     Dates: start: 2022
  2. REMICADE [Suspect]
     Active Substance: INFLIXIMAB
     Route: 041
     Dates: start: 20231115
  3. ASPIRIN [Concomitant]
     Active Substance: ASPIRIN
     Indication: Colitis ulcerative

REACTIONS (3)
  - Eye disorder [Recovering/Resolving]
  - Enteritis [Unknown]
  - Hypersensitivity [Unknown]

NARRATIVE: CASE EVENT DATE: 20231115
